FAERS Safety Report 11703364 (Version 5)
Quarter: 2019Q1

REPORT INFORMATION
  Report Type: Spontaneous
  Country: US (occurrence: US)
  Receive Date: 20151105
  Receipt Date: 20190220
  Transmission Date: 20190417
  Serious: Yes (Other)
  Sender: FDA-Public Use
  Company Number: US-DSJP-DSU-2015-121608

PATIENT

DRUGS (2)
  1. BENICAR [Suspect]
     Active Substance: OLMESARTAN MEDOXOMIL
     Dosage: 40-1/2 TABLET, UNK
  2. BENICAR [Suspect]
     Active Substance: OLMESARTAN MEDOXOMIL
     Indication: HYPERTENSION
     Dosage: 20 MG
     Dates: start: 2002

REACTIONS (4)
  - Haemorrhoids [Unknown]
  - Product administration error [Unknown]
  - Diverticulitis [Recovered/Resolved]
  - Sprue-like enteropathy [Unknown]

NARRATIVE: CASE EVENT DATE: 2002
